FAERS Safety Report 5356888-3 (Version None)
Quarter: 2007Q2

REPORT INFORMATION
  Report Type: 
  Country: None (occurrence: None)
  Receive Date: 20070614
  Receipt Date: 20070605
  Transmission Date: 20071010
  Serious: Yes (Hospitalization)
  Sender: FDA-Public Use
  Company Number: US-ROCHE-500935

PATIENT
  Sex: Female
  Weight: 79.8 kg

DRUGS (3)
  1. XELODA [Suspect]
     Indication: BREAST CANCER
     Route: 065
     Dates: start: 20070427, end: 20070530
  2. TYKERB [Suspect]
     Indication: BREAST CANCER
     Route: 065
     Dates: end: 20070530
  3. TYKERB [Suspect]
     Route: 065
     Dates: start: 20070605

REACTIONS (4)
  - ASTHENIA [None]
  - NAUSEA [None]
  - OCULAR HYPERAEMIA [None]
  - RASH [None]
